FAERS Safety Report 13008641 (Version 3)
Quarter: 2017Q1

REPORT INFORMATION
  Report Type: Spontaneous
  Country: US (occurrence: US)
  Receive Date: 20161208
  Receipt Date: 20170313
  Transmission Date: 20170428
  Serious: No
  Sender: FDA-Public Use
  Company Number: US-PFIZER INC-2016569903

PATIENT
  Age: 55 Year
  Sex: Female
  Weight: 61 kg

DRUGS (2)
  1. PREMARIN [Concomitant]
     Active Substance: ESTROGENS, CONJUGATED
     Dosage: 0.22 MG, 1X/DAY (ONE HALF OF 0.44 MG TABLET)
     Dates: start: 2016
  2. ESTRING [Suspect]
     Active Substance: ESTRADIOL
     Indication: ARTIFICIAL MENOPAUSE
     Dosage: UNK
     Dates: start: 2016

REACTIONS (3)
  - Vulvovaginal pain [Recovering/Resolving]
  - Arthralgia [Not Recovered/Not Resolved]
  - Vulvovaginal discomfort [Recovering/Resolving]
